FAERS Safety Report 5722628-9 (Version None)
Quarter: 2008Q2

REPORT INFORMATION
  Report Type: 
  Country: None (occurrence: None)
  Receive Date: 20080429
  Receipt Date: 20070831
  Transmission Date: 20081010
  Serious: No
  Sender: FDA-Public Use
  Company Number: US-ASTRAZENECA-2007UW20760

PATIENT
  Age: 73 Year
  Weight: 91.2 kg

DRUGS (7)
  1. NEXIUM [Suspect]
     Indication: GASTROOESOPHAGEAL REFLUX DISEASE
     Route: 048
  2. NEXIUM [Suspect]
     Route: 048
  3. FOLIC ACID [Concomitant]
  4. METOPROLOL TARTRATE [Concomitant]
  5. TEMAZEPAM [Concomitant]
  6. CORTIAX [Concomitant]
  7. ASPIRIN [Concomitant]

REACTIONS (5)
  - COUGH [None]
  - DIZZINESS [None]
  - DYSPHONIA [None]
  - MALAISE [None]
  - NERVOUSNESS [None]
